FAERS Safety Report 17866146 (Version 1)
Quarter: 2020Q2

REPORT INFORMATION
  Report Type: Report from Study
  Country: FR (occurrence: FR)
  Receive Date: 20200605
  Receipt Date: 20200605
  Transmission Date: 20200714
  Serious: Yes (Death)
  Sender: FDA-Public Use
  Company Number: FR-TAKEDA-2019TUS046141

PATIENT
  Sex: Female

DRUGS (13)
  1. MOPRAL                             /00661201/ [Concomitant]
     Active Substance: OMEPRAZOLE SODIUM
     Indication: GASTROINTESTINAL DISORDER PROPHYLAXIS
     Dosage: 20 MILLIGRAM, QD
     Route: 048
  2. ARIXTRA [Concomitant]
     Active Substance: FONDAPARINUX SODIUM
     Indication: THROMBOSIS PROPHYLAXIS
     Dosage: UNK UNK, QD
  3. SOLUPRED                           /00016201/ [Concomitant]
     Active Substance: PREDNISOLONE
     Indication: PRODUCT USED FOR UNKNOWN INDICATION
     Dosage: 20 MILLIGRAM
     Route: 048
  4. STILNOX [Concomitant]
     Active Substance: ZOLPIDEM TARTRATE
     Indication: ANXIETY
     Dosage: 10 MILLIGRAM, QD
     Route: 048
  5. ALPRAZOLAM. [Concomitant]
     Active Substance: ALPRAZOLAM
     Indication: ANXIETY
     Dosage: 0.5 MILLIGRAM, QD
  6. ACTISKENAN [Concomitant]
     Active Substance: MORPHINE SULFATE
     Indication: OSTEOARTHRITIS
     Dosage: 10 MILLIGRAM
     Route: 048
  7. MELAXOSE [Concomitant]
     Active Substance: LACTULOSE\PARAFFIN
     Indication: GASTROINTESTINAL DISORDER PROPHYLAXIS
     Dosage: UNK
     Route: 048
  8. SKENAN [Concomitant]
     Active Substance: MORPHINE SULFATE
     Indication: OSTEOARTHRITIS
     Dosage: 10 MILLIGRAM, BID
     Route: 048
  9. IXAZOMIB [Suspect]
     Active Substance: IXAZOMIB
     Indication: PLASMA CELL MYELOMA
     Dosage: 4 MILLIGRAM
     Route: 048
     Dates: start: 20180129, end: 20180308
  10. LEVOTHYROX [Concomitant]
     Active Substance: LEVOTHYROXINE
     Indication: HYPOTHYROIDISM
     Dosage: 100 MICROGRAM, QD
     Route: 048
  11. NEOFORDEX [Suspect]
     Active Substance: DEXAMETHASONE ACETATE
     Indication: PLASMA CELL MYELOMA
     Dosage: 40 MILLIGRAM
     Route: 048
     Dates: start: 20180129, end: 20180308
  12. REVLIMID [Suspect]
     Active Substance: LENALIDOMIDE
     Indication: PLASMA CELL MYELOMA
     Dosage: 25 MILLIGRAM
     Route: 048
     Dates: start: 20180129, end: 20180308
  13. KARDEGIC [Concomitant]
     Active Substance: ASPIRIN DL-LYSINE
     Indication: THROMBOSIS PROPHYLAXIS
     Dosage: 75 MILLIGRAM, QD

REACTIONS (4)
  - Death [Fatal]
  - Anaemia [Recovered/Resolved]
  - Thrombocytopenia [Recovered/Resolved]
  - Vertigo [Recovered/Resolved]

NARRATIVE: CASE EVENT DATE: 20180130
